FAERS Safety Report 20157097 (Version 1)
Quarter: 2021Q4

REPORT INFORMATION
  Report Type: Spontaneous
  Country: US (occurrence: None)
  Receive Date: 20211207
  Receipt Date: 20211207
  Transmission Date: 20220303
  Serious: Yes (Other)
  Sender: FDA-Public Use
  Company Number: None

PATIENT
  Age: 57 Year
  Sex: Female

DRUGS (1)
  1. COSENTYX [Suspect]
     Active Substance: SECUKINUMAB
     Indication: Product used for unknown indication
     Dosage: OTHER FREQUENCY : OTHER;?
     Route: 058
     Dates: start: 202110

REACTIONS (2)
  - Breast mass [None]
  - Mammogram abnormal [None]

NARRATIVE: CASE EVENT DATE: 20211206
